FAERS Safety Report 23184502 (Version 2)
Quarter: 2023Q4

REPORT INFORMATION
  Report Type: Other
  Country: US (occurrence: None)
  Receive Date: 20231115
  Receipt Date: 20231117
  Transmission Date: 20240110
  Serious: Yes (Death)
  Sender: FDA-Public Use
  Company Number: US-ROCHE-3457354

PATIENT
  Age: 68 Year
  Sex: Male

DRUGS (17)
  1. HERCEPTIN [Suspect]
     Active Substance: TRASTUZUMAB
     Indication: Oesophageal carcinoma
     Dosage: VIAL, INFUSE 690.4 MG INTRAVENOUSLY EVERY 3 WEEKS
     Route: 042
  2. HERCEPTIN [Suspect]
     Active Substance: TRASTUZUMAB
     Indication: Metastases to central nervous system
  3. ACYCLOVIR [Concomitant]
     Active Substance: ACYCLOVIR
     Route: 048
     Dates: start: 20230906
  4. ALBUTEROL [Concomitant]
     Active Substance: ALBUTEROL
     Indication: Wheezing
     Dosage: 2 PUFFS INTO LUNGS AS NEEDED 6 HOURLY
     Route: 055
     Dates: start: 20230619
  5. MEPRON [Concomitant]
     Active Substance: ATOVAQUONE
     Dosage: 750 MG/5 ML. TREATMENT TO PREVENT PNEUMONIA DUE TO PNEUMOCYSTIC CARINII
     Route: 048
     Dates: start: 20230906
  6. DECADRON [Concomitant]
     Active Substance: DEXAMETHASONE
     Dosage: WITH BREAKFAST
     Route: 048
     Dates: start: 20230809
  7. MAGIC MOUTHWASH [ALUMINIUM HYDROXIDE;DIPHENHYDRAMINE;LIDOCAINE;MAGNESI [Concomitant]
     Indication: Pain
     Dosage: SWISH AND SPIT 5 MLS EVERY 4 HOURS AS NEEDED FOR PAIN (RECIPE = 1:1:1 MIXTURE OF MAALOX, DIPHENHYDRA
     Dates: start: 20230816
  8. SYNTHROID [Concomitant]
     Active Substance: LEVOTHYROXINE SODIUM
     Dosage: 112 MCG
     Route: 048
     Dates: start: 20230222
  9. IMODIUM [Concomitant]
     Active Substance: LOPERAMIDE HYDROCHLORIDE
     Indication: Diarrhoea
     Dosage: TAKE 4 MG ONCE DIARRHEA STARTS, THEN 2 MG AFTER EACH DIARRHEA EPISODE
     Route: 048
     Dates: start: 20230619
  10. LOPRESSOR [Concomitant]
     Active Substance: METOPROLOL TARTRATE
     Route: 048
     Dates: start: 20230814
  11. ENSURE [Concomitant]
     Active Substance: AMINO ACIDS\DEXTROSE\ELECTROLYTES NOS\SOYBEAN OIL\VITAMINS
     Dosage: TAKE 1 CAN BY MOUTH ONE TO TWO TIMES DAILY DEPENDING ON OTHER INTAKE. INDICATIONS: NUTRITION
     Route: 048
     Dates: start: 20230612
  12. OXYGEN [Concomitant]
     Active Substance: OXYGEN
     Dosage: INHALE 2 L INTO THE LUNGS CONTINUOUS WHILE SLEEPING ONLY. INDICATIONS: DIFFICULTY BREATHING WHILE RE
     Route: 055
     Dates: start: 20230612
  13. PANTOPRAZOLE [Concomitant]
     Active Substance: PANTOPRAZOLE
     Dosage: 1 TABLET BY MOUTH EVERY MORNING (BEFORE BREAKFAST).
     Route: 048
     Dates: start: 20230101
  14. POTASSIUM CHLORIDE [Concomitant]
     Active Substance: POTASSIUM CHLORIDE
     Route: 048
     Dates: start: 20230531
  15. TUKYSA [Concomitant]
     Active Substance: TUCATINIB
     Dosage: 2 TABLETS (300 MG)
     Route: 048
     Dates: start: 20230911
  16. XGEVA [Concomitant]
     Active Substance: DENOSUMAB
     Dosage: 120 MG/1.7 ML INJECTION 120 MG
     Route: 058
     Dates: start: 20230913, end: 20230913
  17. NPLATE [Concomitant]
     Active Substance: ROMIPLOSTIM
     Dosage: 1 MCG/KG X 86.3 KG
     Route: 058
     Dates: start: 20230913, end: 20230913

REACTIONS (2)
  - Death [Fatal]
  - Off label use [Unknown]

NARRATIVE: CASE EVENT DATE: 20231018
